FAERS Safety Report 7067334-6 (Version None)
Quarter: 2010Q4

REPORT INFORMATION
  Report Type: 
  Country: None (occurrence: None)
  Receive Date: 20101022
  Receipt Date: 20101022
  Transmission Date: 20110411
  Serious: Yes (Death)
  Sender: FDA-Public Use
  Company Number: None

PATIENT
  Age: 75 Year
  Sex: Male
  Weight: 83.9154 kg

DRUGS (6)
  1. PLAVIX [Suspect]
     Indication: POSTOPERATIVE CARE
     Dosage: 75MG DAILY PO
     Route: 048
     Dates: start: 20100212, end: 20100925
  2. PLAVIX [Suspect]
     Indication: STENT PLACEMENT
     Dosage: 75MG DAILY PO
     Route: 048
     Dates: start: 20100212, end: 20100925
  3. WARFARIN 5MG 51672-4032-01 [Suspect]
     Indication: ATRIAL FIBRILLATION
     Dosage: 5MG - 7.5MG DAILY PO
     Route: 048
     Dates: start: 20041201, end: 20100925
  4. ASPIRIN [Concomitant]
  5. LOVAZA [Concomitant]
  6. FAMOTIDINE [Concomitant]

REACTIONS (2)
  - SUBDURAL HAEMATOMA [None]
  - UNRESPONSIVE TO STIMULI [None]
